FAERS Safety Report 18835995 (Version 1)
Quarter: 2021Q1

REPORT INFORMATION
  Report Type: Spontaneous
  Country: US (occurrence: US)
  Receive Date: 20210203
  Receipt Date: 20210203
  Transmission Date: 20210419
  Serious: No
  Sender: FDA-Public Use
  Company Number: US-TEVA-2021-US-1871628

PATIENT
  Age: 71 Year
  Sex: Female

DRUGS (1)
  1. TEVA MUPIROCIN [Suspect]
     Active Substance: MUPIROCIN
     Indication: RHINALGIA
     Route: 045

REACTIONS (2)
  - Incorrect route of product administration [Unknown]
  - Nasal dryness [Not Recovered/Not Resolved]
